FAERS Safety Report 5395278-4 (Version None)
Quarter: 2007Q3

REPORT INFORMATION
  Report Type: 
  Country: None (occurrence: None)
  Receive Date: 20070724
  Receipt Date: 20070716
  Transmission Date: 20080115
  Serious: Yes (Hospitalization)
  Sender: FDA-Public Use
  Company Number: FR-BAXTER-2007BH006387

PATIENT
  Age: 5 Year
  Sex: Female

DRUGS (3)
  1. IMMUNE GLOBULIN INTRAVENOUS (HUMAN) [Suspect]
     Indication: DRUG USE FOR UNKNOWN INDICATION
     Route: 065
     Dates: start: 20070701
  2. POLARAMINE [Concomitant]
     Dates: start: 20070701
  3. SOLU-MEDROL [Concomitant]
     Dates: start: 20070701

REACTIONS (2)
  - COUGH [None]
  - EYELID OEDEMA [None]
